FAERS Safety Report 5051496-6 (Version None)
Quarter: 2006Q3

REPORT INFORMATION
  Report Type: 
  Country: None (occurrence: None)
  Receive Date: 20060711
  Receipt Date: 20060628
  Transmission Date: 20061208
  Serious: Yes (Hospitalization)
  Sender: FDA-Public Use
  Company Number: 2006PV015791

PATIENT
  Age: 54 Year
  Sex: Male

DRUGS (9)
  1. BYETTA [Suspect]
     Indication: DIABETES MELLITUS NON-INSULIN-DEPENDENT
     Dosage: SEE IMAGE
     Route: 058
     Dates: start: 20050901, end: 20051001
  2. BYETTA [Suspect]
     Indication: DIABETES MELLITUS NON-INSULIN-DEPENDENT
     Dosage: SEE IMAGE
     Route: 058
     Dates: start: 20051001
  3. STARLIX [Concomitant]
  4. ACTOS [Concomitant]
  5. LANTUS [Concomitant]
  6. HUMALOG [Concomitant]
  7. COREG [Concomitant]
  8. COUMADIN [Concomitant]
  9. AMIODARONE HCL [Concomitant]

REACTIONS (12)
  - ABDOMINAL DISTENSION [None]
  - AORTIC VALVE CALCIFICATION [None]
  - ATRIAL FIBRILLATION [None]
  - ATRIAL FLUTTER [None]
  - BLOOD GLUCOSE INCREASED [None]
  - CARDIOMYOPATHY [None]
  - DECREASED APPETITE [None]
  - DILATATION ATRIAL [None]
  - EJECTION FRACTION DECREASED [None]
  - GLYCOSYLATED HAEMOGLOBIN INCREASED [None]
  - MITRAL VALVE CALCIFICATION [None]
  - VENTRICULAR HYPERTROPHY [None]
